FAERS Safety Report 13688451 (Version 1)
Quarter: 2017Q2

REPORT INFORMATION
  Report Type: Spontaneous
  Country: US (occurrence: US)
  Receive Date: 20170623
  Receipt Date: 20170623
  Transmission Date: 20170830
  Serious: Yes (Hospitalization)
  Sender: FDA-Public Use
  Company Number: None

PATIENT
  Age: 28 Year
  Sex: Male

DRUGS (1)
  1. JADENU [Suspect]
     Active Substance: DEFERASIROX
     Route: 048

REACTIONS (4)
  - Drug dose omission [None]
  - Weight decreased [None]
  - Iron overload [None]
  - Pain [None]

NARRATIVE: CASE EVENT DATE: 20170622
